FAERS Safety Report 7993680-5 (Version None)
Quarter: 2011Q4

REPORT INFORMATION
  Report Type: 
  Country: None (occurrence: None)
  Receive Date: 20111219
  Receipt Date: 20050901
  Transmission Date: 20120403
  Serious: Yes (Other)
  Sender: FDA-Public Use
  Company Number: PHHY2005CL007086

PATIENT
  Sex: Female

DRUGS (1)
  1. VALSARTAN [Suspect]

REACTIONS (1)
  - DIABETES MELLITUS [None]
